FAERS Safety Report 9190438 (Version 1)
Quarter: 2013Q1

REPORT INFORMATION
  Report Type: Spontaneous
  Country: VE (occurrence: VE)
  Receive Date: 20130326
  Receipt Date: 20130326
  Transmission Date: 20140127
  Serious: Yes (Death)
  Sender: FDA-Public Use
  Company Number: VE-PFIZER INC-2013094810

PATIENT
  Age: 82 Year
  Sex: Female

DRUGS (1)
  1. CADUET [Suspect]
     Dosage: [AMLODIPINE 5 MG]/[ATORVASTATIN 10 MG], DAILY

REACTIONS (2)
  - Blood pressure decreased [Fatal]
  - Blood glucose decreased [Fatal]
